FAERS Safety Report 7477032-2 (Version None)
Quarter: 2011Q2

REPORT INFORMATION
  Report Type: 
  Country: None (occurrence: None)
  Receive Date: 20110512
  Receipt Date: 20110506
  Transmission Date: 20111010
  Serious: Yes (Hospitalization)
  Sender: FDA-Public Use
  Company Number: US-B.I. PHARMACEUTICALS,INC./RIDGEFIELD-2011-BP-09811BP

PATIENT
  Sex: Female

DRUGS (4)
  1. LIPITOR [Concomitant]
  2. ANTI HYPERTENSIVE [Concomitant]
  3. MOBIC [Suspect]
     Indication: ARTHRITIS
     Dosage: 15 MG
  4. ANTI HYPERTENSIVE [Concomitant]

REACTIONS (1)
  - ULCER HAEMORRHAGE [None]
